FAERS Safety Report 9848807 (Version 1)
Quarter: 2014Q1

REPORT INFORMATION
  Report Type: Spontaneous
  Country: US (occurrence: None)
  Receive Date: 20140122
  Receipt Date: 20140122
  Transmission Date: 20141002
  Serious: Yes (Other)
  Sender: FDA-Public Use
  Company Number: 2130978

PATIENT
  Age: 28 Year
  Sex: Male

DRUGS (4)
  1. DIPHENHYDRAMINE [Suspect]
     Route: 051
  2. NALOXONE HYDROCHLORIDE [Suspect]
     Route: 051
  3. EPINEPHRINE [Suspect]
     Route: 051
  4. HEROIN [Suspect]
     Route: 051

REACTIONS (4)
  - Respiratory arrest [None]
  - Completed suicide [None]
  - Poisoning [None]
  - Cardiac arrest [None]
